FAERS Safety Report 11926095 (Version 1)
Quarter: 2016Q1

REPORT INFORMATION
  Report Type: Report from Study
  Country: FR (occurrence: FR)
  Receive Date: 20160119
  Receipt Date: 20160119
  Transmission Date: 20160526
  Serious: Yes (Hospitalization, Other)
  Sender: FDA-Public Use
  Company Number: FR-BRISTOL-MYERS SQUIBB COMPANY-11923927

PATIENT
  Age: 37 Year
  Sex: Female

DRUGS (8)
  1. DIDANOSINE. [Suspect]
     Active Substance: DIDANOSINE
     Indication: HIV INFECTION
     Dosage: 250 MG, QD
     Route: 065
  2. ZIAGEN [Suspect]
     Active Substance: ABACAVIR SULFATE
     Indication: HIV INFECTION
     Dosage: 600 MG, QD
     Route: 048
     Dates: start: 200002
  3. RETROVIR [Suspect]
     Active Substance: ZIDOVUDINE
     Indication: PROPHYLAXIS AGAINST HIV INFECTION
     Dosage: UNK
     Route: 041
     Dates: start: 20020112
  4. MALOCIDE [Concomitant]
     Active Substance: PYRIMETHAMINE
     Indication: CEREBRAL TOXOPLASMOSIS
     Dosage: 25 MG, QD
     Route: 048
     Dates: start: 199612
  5. LEDERFOLINE [Concomitant]
     Active Substance: LEUCOVORIN CALCIUM
     Indication: CEREBRAL TOXOPLASMOSIS
     Dosage: 75 MG, QD
     Route: 048
     Dates: start: 199612
  6. AGENERASE [Suspect]
     Active Substance: AMPRENAVIR
     Indication: HIV INFECTION
     Dosage: 1200 MG, QD
     Route: 048
     Dates: start: 200002
  7. NORVIR [Suspect]
     Active Substance: RITONAVIR
     Indication: HIV INFECTION
     Dosage: 200 MG, QD
     Route: 048
     Dates: start: 200002
  8. ADIAZINE [Concomitant]
     Active Substance: SULFADIAZINE
     Indication: CEREBRAL TOXOPLASMOSIS
     Dosage: 2 G, QD
     Route: 048
     Dates: start: 199612

REACTIONS (5)
  - Pregnancy [Recovered/Resolved]
  - Premature rupture of membranes [Unknown]
  - Premature delivery [Unknown]
  - Mental disorder [Unknown]
  - Caesarean section [Unknown]

NARRATIVE: CASE EVENT DATE: 20020111
